FAERS Safety Report 20089909 (Version 1)
Quarter: 2021Q4

REPORT INFORMATION
  Report Type: Spontaneous
  Country: BR (occurrence: BR)
  Receive Date: 20211119
  Receipt Date: 20211119
  Transmission Date: 20220303
  Serious: Yes (Other)
  Sender: FDA-Public Use
  Company Number: BR-ABBVIE-21K-020-4166613-00

PATIENT
  Sex: Male
  Weight: 67 kg

DRUGS (6)
  1. VALPROATE SODIUM [Suspect]
     Active Substance: VALPROATE SODIUM
     Indication: Myoclonic epilepsy
     Dosage: 2 ML IN THE MORNING, 3 ML IN THE AFTERNOON AND 3ML IN THE EVENING
     Route: 048
  2. VALPROATE SODIUM [Suspect]
     Active Substance: VALPROATE SODIUM
     Route: 048
  3. CLONAZEPAM [Concomitant]
     Active Substance: CLONAZEPAM
     Indication: Product used for unknown indication
  4. SABRIL [Concomitant]
     Active Substance: VIGABATRIN
     Indication: Product used for unknown indication
  5. TOPIRAMATE [Concomitant]
     Active Substance: TOPIRAMATE
     Indication: Product used for unknown indication
  6. URSODIOL [Concomitant]
     Active Substance: URSODIOL
     Indication: Product used for unknown indication

REACTIONS (6)
  - Biliary obstruction [Not Recovered/Not Resolved]
  - Drug withdrawal syndrome [Unknown]
  - Hypophagia [Unknown]
  - Screaming [Unknown]
  - Gamma-glutamyltransferase increased [Recovered/Resolved]
  - Insomnia [Unknown]
